FAERS Safety Report 14745932 (Version 7)
Quarter: 2019Q3

REPORT INFORMATION
  Report Type: Spontaneous
  Country: US (occurrence: US)
  Receive Date: 20180411
  Receipt Date: 20190726
  Transmission Date: 20191004
  Serious: Yes (Death, Other)
  Sender: FDA-Public Use
  Company Number: US-GLAXOSMITHKLINE-US2018GSK061113

PATIENT
  Sex: Male

DRUGS (4)
  1. PANTOPRAZOLE [Suspect]
     Active Substance: PANTOPRAZOLE
     Indication: PRODUCT USED FOR UNKNOWN INDICATION
     Dosage: 40 MG, QD
     Route: 048
  2. PREVACID [Suspect]
     Active Substance: LANSOPRAZOLE
     Indication: PRODUCT USED FOR UNKNOWN INDICATION
     Dosage: UNK
     Route: 065
  3. PREVACID [Suspect]
     Active Substance: LANSOPRAZOLE
     Indication: PRODUCT USED FOR UNKNOWN INDICATION
     Dosage: UNK
     Route: 065
  4. ESOMEPRAZOLE. [Suspect]
     Active Substance: ESOMEPRAZOLE MAGNESIUM
     Indication: PRODUCT USED FOR UNKNOWN INDICATION
     Dosage: UNK
     Route: 065

REACTIONS (21)
  - Renal artery stenosis [Unknown]
  - Nocturia [Unknown]
  - Diabetic nephropathy [Unknown]
  - Nephrosclerosis [Unknown]
  - Renal disorder [Unknown]
  - Renal artery arteriosclerosis [Unknown]
  - Acute kidney injury [Unknown]
  - Renal vessel disorder [Unknown]
  - Proteinuria [Unknown]
  - Pneumonia [Fatal]
  - Renal failure [Unknown]
  - Renal impairment [Unknown]
  - Polyuria [Unknown]
  - Hypertension [Fatal]
  - Chronic kidney disease [Unknown]
  - Hypertensive nephropathy [Unknown]
  - Chronic kidney disease-mineral and bone disorder [Unknown]
  - Ischaemic nephropathy [Unknown]
  - Pollakiuria [Unknown]
  - Renal cyst [Unknown]
  - Haematuria [Unknown]
